FAERS Safety Report 24657615 (Version 7)
Quarter: 2025Q1

REPORT INFORMATION
  Report Type: Report from Study
  Country: CO (occurrence: CO)
  Receive Date: 20241125
  Receipt Date: 20250321
  Transmission Date: 20250409
  Serious: Yes (Death, Life-Threatening, Hospitalization, Other)
  Sender: AMGEN
  Company Number: CO-AMGEN-COLSL2024227243

PATIENT
  Age: 63 Year
  Sex: Male

DRUGS (1)
  1. VECTIBIX [Suspect]
     Active Substance: PANITUMUMAB
     Indication: Colorectal cancer metastatic
     Dosage: 472 MILLIGRAM, Q2WK, BIWEEKLY
     Route: 040
     Dates: start: 20240205, end: 20241202

REACTIONS (9)
  - Colorectal cancer metastatic [Fatal]
  - Respiratory failure [Not Recovered/Not Resolved]
  - Brain neoplasm [Recovering/Resolving]
  - Spinal pain [Not Recovered/Not Resolved]
  - Back pain [Not Recovered/Not Resolved]
  - Abdominal pain [Not Recovered/Not Resolved]
  - Refusal of treatment by patient [Unknown]
  - Emotional disorder [Not Recovered/Not Resolved]
  - General physical health deterioration [Unknown]

NARRATIVE: CASE EVENT DATE: 20240101
